FAERS Safety Report 10936367 (Version 1)
Quarter: 2015Q1

REPORT INFORMATION
  Report Type: Spontaneous
  Country: US (occurrence: None)
  Receive Date: 20150212
  Receipt Date: 20150212
  Transmission Date: 20150721
  Serious: No
  Sender: FDA-Public Use
  Company Number: TPA2011A05220

PATIENT
  Age: 71 Year
  Sex: Female
  Weight: 69.4 kg

DRUGS (2)
  1. VERAPAMIL [Concomitant]
     Active Substance: VERAPAMIL HYDROCHLORIDE
  2. ULORIC [Suspect]
     Active Substance: FEBUXOSTAT
     Indication: GOUT
     Dates: start: 20110810

REACTIONS (2)
  - Condition aggravated [None]
  - Gout [None]

NARRATIVE: CASE EVENT DATE: 201108
